FAERS Safety Report 15354131 (Version 1)
Quarter: 2018Q3

REPORT INFORMATION
  Report Type: Report from Study
  Country: BR (occurrence: BR)
  Receive Date: 20180906
  Receipt Date: 20180906
  Transmission Date: 20181010
  Serious: Yes (Death, Hospitalization)
  Sender: FDA-Public Use
  Company Number: PHHY2018BR086491

PATIENT
  Age: 78 Year
  Sex: Female
  Weight: 72 kg

DRUGS (7)
  1. HYDROCHLOROTHIAZIDE. [Suspect]
     Active Substance: HYDROCHLOROTHIAZIDE
     Indication: POLYURIA
     Dosage: 0.5 DF, QD, (MORNING)
     Route: 048
  2. GLIFAGE [Suspect]
     Active Substance: METFORMIN HYDROCHLORIDE
     Indication: BLOOD GLUCOSE INCREASED
     Dosage: 1 DF, QD, IN THE MORNING
     Route: 048
     Dates: start: 2014
  3. LOSARTAN. [Suspect]
     Active Substance: LOSARTAN
     Indication: HYPERTENSION
     Dosage: 1 DF, QD (IN THE MORNING AFTER BREAKFAST)
     Route: 048
     Dates: start: 2016
  4. ALENIA [Suspect]
     Active Substance: BUDESONIDE\FORMOTEROL FUMARATE
     Indication: ASTHMA
     Dosage: 4 DF, QD, (4 INHALATION A DAY)
     Route: 055
     Dates: start: 2016
  5. IPRATROPIUM BROMIDE. [Suspect]
     Active Substance: IPRATROPIUM BROMIDE
     Indication: BRONCHITIS
     Dosage: 2 DROPS IN 5ML OF SALINE SOLUTION
     Route: 065
  6. BEROTEC [Suspect]
     Active Substance: FENOTEROL HYDROBROMIDE
     Indication: BRONCHITIS
     Route: 065
  7. ALENIA [Suspect]
     Active Substance: BUDESONIDE\FORMOTEROL FUMARATE
     Dosage: 2 DF, QD, (2 INHALATION A DAY, MORNING AND NIGHT)
     Route: 055
     Dates: start: 2016

REACTIONS (5)
  - Cardiac disorder [Not Recovered/Not Resolved]
  - Asthmatic crisis [Not Recovered/Not Resolved]
  - Nasopharyngitis [Not Recovered/Not Resolved]
  - Diabetes mellitus [Fatal]
  - Pneumonia [Not Recovered/Not Resolved]

NARRATIVE: CASE EVENT DATE: 20180723
